FAERS Safety Report 12225764 (Version 1)
Quarter: 2016Q1

REPORT INFORMATION
  Report Type: Spontaneous
  Country: JP (occurrence: JP)
  Receive Date: 20160331
  Receipt Date: 20160331
  Transmission Date: 20160526
  Serious: Yes (Other)
  Sender: FDA-Public Use
  Company Number: JP-PFIZER INC-2016179778

PATIENT

DRUGS (3)
  1. MYSLEE [Concomitant]
     Active Substance: ZOLPIDEM TARTRATE
     Route: 048
  2. CABASER [Suspect]
     Active Substance: CABERGOLINE
     Indication: PARKINSON^S DISEASE
     Route: 048
  3. DEPAS [Concomitant]
     Active Substance: ETIZOLAM
     Route: 048

REACTIONS (4)
  - Delirium [Unknown]
  - Hallucination [Unknown]
  - Dysphoria [Unknown]
  - Delusion [Unknown]
